FAERS Safety Report 5700364-2 (Version None)
Quarter: 2008Q2

REPORT INFORMATION
  Report Type: 
  Country: None (occurrence: None)
  Receive Date: 20080410
  Receipt Date: 20080331
  Transmission Date: 20081010
  Serious: Yes (Death, Hospitalization, Other)
  Sender: FDA-Public Use
  Company Number: GB-ELI_LILLY_AND_COMPANY-GB200802006825

PATIENT
  Sex: Male

DRUGS (4)
  1. GEMZAR [Suspect]
     Dosage: 1250 MG/M2, 2740MG
     Dates: start: 20071120
  2. GEMZAR [Interacting]
     Dosage: UNK, UNKNOWN
     Route: 065
     Dates: start: 20080102
  3. GEMZAR [Interacting]
     Dosage: UNK, UNKNOWN
     Route: 065
     Dates: start: 20080109
  4. NAPROXEN [Interacting]
     Indication: GOUT

REACTIONS (8)
  - ALOPECIA [None]
  - CELLULITIS [None]
  - COUGH [None]
  - DYSPNOEA [None]
  - HYPERHIDROSIS [None]
  - NEUTROPENIC SEPSIS [None]
  - PULMONARY OEDEMA [None]
  - RENAL FAILURE ACUTE [None]
